FAERS Safety Report 17637150 (Version 1)
Quarter: 2020Q2

REPORT INFORMATION
  Report Type: Spontaneous
  Country: DK (occurrence: DK)
  Receive Date: 20200407
  Receipt Date: 20200407
  Transmission Date: 20200713
  Serious: Yes (Other)
  Sender: FDA-Public Use
  Company Number: DK-MYLANLABS-2020M1033767

PATIENT
  Age: 72 Year
  Sex: Female

DRUGS (18)
  1. MINITRAN [Suspect]
     Active Substance: NITROGLYCERIN
     Indication: CARDIOVASCULAR DISORDER
     Dosage: DAILY (WAITS 8 HOURS FROM WHEN SHE REMOVES A PATCH UNTIL SHE PUTS ON A NEW PATCH.
     Route: 062
     Dates: start: 2016
  2. TAFIL                              /00595201/ [Concomitant]
     Active Substance: ALPRAZOLAM
     Indication: MYOCARDIAL INFARCTION
     Dosage: AS NEEDED DURING A HEART ATTACK IF SPASMS AND CONTRACTIONS DO NOT EASE
  3. GLYTRIN                            /00003201/ [Concomitant]
     Indication: MYOCARDIAL INFARCTION
     Dosage: UNK UNK, PRN
  4. CENTYL MITE MED KALIUMKLORID [Concomitant]
     Indication: CARDIOVASCULAR DISORDER
     Dosage: 2 TABLETS, QD
  5. KALEORID [Concomitant]
     Active Substance: POTASSIUM CHLORIDE
     Indication: CARDIOVASCULAR DISORDER
     Dosage: 750 MILLIGRAM
  6. VIVELLE-DOT [Concomitant]
     Active Substance: ESTRADIOL
     Indication: HORMONE THERAPY
     Dosage: 50 MILLIGRAM TWICE PER WEEK
  7. APURIN [Concomitant]
     Active Substance: ALLOPURINOL
     Indication: PULMONARY VALVE DISEASE
     Dosage: 150 MILLIGRAM, QD
  8. PANTOLOC                           /01263201/ [Concomitant]
     Active Substance: PANTOPRAZOLE SODIUM
     Indication: GASTROOESOPHAGEAL REFLUX DISEASE
     Dosage: 40 MILLIGRAM, BID, MORNING AND EVENING
  9. CRESTOR [Concomitant]
     Active Substance: ROSUVASTATIN CALCIUM
     Indication: CARDIOVASCULAR DISORDER
     Dosage: 10 MILLIGRAM, QD
  10. SELOZOK [Concomitant]
     Active Substance: METOPROLOL SUCCINATE
     Indication: CARDIOVASCULAR DISORDER
     Dosage: 75 MILLIGRAM, BID, MORNING AND EVENING
  11. OZEMPIC [Concomitant]
     Active Substance: SEMAGLUTIDE
     Indication: TYPE 2 DIABETES MELLITUS
     Dosage: 1 MILLIGRAM, ONCE WEEKLY
  12. MAGNESIA                           /00123201/ [Concomitant]
     Active Substance: MAGNESIUM HYDROXIDE
     Indication: CONSTIPATION
     Dosage: 3 DOSAGE FORM
  13. JARDIANCE [Concomitant]
     Active Substance: EMPAGLIFLOZIN
     Indication: TYPE 2 DIABETES MELLITUS
     Dosage: 10 MILLIGRAM, QD
  14. NITRAZEPAM [Concomitant]
     Active Substance: NITRAZEPAM
     Indication: INSOMNIA
     Dosage: 1 TABLET 5 MILLIGRAM, EVENING
  15. ZITHROMAX [Concomitant]
     Active Substance: AZITHROMYCIN DIHYDRATE
     Indication: RESPIRATORY TRACT INFECTION
  16. ASPIRIN 81 [Concomitant]
     Active Substance: ASPIRIN
     Indication: CARDIOVASCULAR DISORDER
     Dosage: 100 MILLIGRAM, QD (MORNING)
  17. KODEIN [Concomitant]
     Active Substance: CODEINE PHOSPHATE
     Indication: PULMONARY VALVE DISEASE
     Dosage: 25 MILLIGRAM, BID, MORNING AND EVENING
  18. MAXIDEX [Concomitant]
     Active Substance: DEXAMETHASONE
     Indication: CONJUNCTIVITIS
     Dosage: UNK, PRN

REACTIONS (7)
  - Product availability issue [Unknown]
  - Myocardial infarction [Recovered/Resolved]
  - Coronary artery compression [Recovered/Resolved]
  - Hypoxia [Recovered/Resolved]
  - Cardiac disorder [Unknown]
  - General physical health deterioration [Not Recovered/Not Resolved]
  - Pain [Unknown]

NARRATIVE: CASE EVENT DATE: 2019
